FAERS Safety Report 9471448 (Version 2)
Quarter: 2013Q3

REPORT INFORMATION
  Report Type: Report from Study
  Country: NL (occurrence: NL)
  Receive Date: 20130822
  Receipt Date: 20130822
  Transmission Date: 20140515
  Serious: Yes (Death)
  Sender: FDA-Public Use
  Company Number: NL-ABBOTT-13P-114-1119635-00

PATIENT
  Sex: Male

DRUGS (1)
  1. LUCRIN DEPOT [Suspect]
     Indication: PROSTATE CANCER
     Route: 058
     Dates: start: 20120806, end: 20130804

REACTIONS (2)
  - Haemorrhage subcutaneous [Fatal]
  - Malaise [Unknown]
